FAERS Safety Report 8025808 (Version 4)
Quarter: 2014Q2

REPORT INFORMATION
  Report Type: Spontaneous
  Country: US (occurrence: US)
  Receive Date: 20110708
  Receipt Date: 20140519
  Transmission Date: 20141212
  Serious: Yes (Death, Hospitalization, Other)
  Sender: FDA-Public Use
  Company Number: US-B.I. PHARMACEUTICALS,INC./RIDGEFIELD-2011-BP-15823BP

PATIENT
  Age: 81 Year
  Sex: Female
  Weight: 81.65 kg

DRUGS (18)
  1. PRADAXA [Suspect]
     Indication: ATRIAL FIBRILLATION
     Dosage: 300 MG
     Route: 048
     Dates: start: 20110420, end: 20111007
  2. LASIX [Concomitant]
     Indication: CARDIAC DISORDER
     Dosage: 80 MG
     Route: 048
     Dates: start: 2009, end: 2011
  3. NITROSTAT [Concomitant]
     Indication: CARDIAC DISORDER
     Route: 048
     Dates: start: 2001, end: 2011
  4. CADUET [Concomitant]
     Indication: CARDIAC DISORDER
     Route: 048
     Dates: start: 2006, end: 2011
  5. LOPRESSOR [Concomitant]
     Indication: CARDIAC DISORDER
     Dosage: 200 MG
     Route: 048
     Dates: start: 2008, end: 2011
  6. KCL [Concomitant]
     Indication: CARDIAC DISORDER
     Dosage: 20 MEQ
     Route: 048
  7. SYNTHROID [Concomitant]
     Indication: HYPOTHYROIDISM
     Dosage: 125 MCG
     Route: 048
     Dates: start: 2009, end: 2011
  8. VALIUM [Concomitant]
     Indication: ANXIETY
     Dosage: 15 MG
     Route: 048
  9. OMEPRAZOLE [Concomitant]
     Indication: CARDIAC DISORDER
     Dosage: 40 MG
     Route: 048
     Dates: start: 2009, end: 2011
  10. ASPIRIN [Concomitant]
     Indication: CARDIAC DISORDER
     Dosage: 81 MG
     Route: 048
     Dates: start: 2009, end: 2011
  11. AMBIEN [Concomitant]
     Indication: SLEEP DISORDER
     Dosage: 6.5 MG
     Route: 048
     Dates: start: 2009, end: 2011
  12. LUNESTA [Concomitant]
     Indication: SLEEP DISORDER
     Dosage: 3 MG
     Route: 048
     Dates: start: 2009, end: 2011
  13. DIGOXIN [Concomitant]
     Dosage: 0.125 MG
     Route: 048
     Dates: start: 2009, end: 2011
  14. REQUIP [Concomitant]
     Indication: RESTLESS LEGS SYNDROME
     Dosage: 20 MG
     Route: 048
     Dates: start: 2009, end: 2011
  15. ENDOCET [Concomitant]
     Route: 048
     Dates: start: 2009, end: 2011
  16. NEXIUM [Concomitant]
     Dosage: 40 MG
     Route: 048
     Dates: start: 2009, end: 2011
  17. TOPROL XL [Concomitant]
     Indication: HYPERTENSION
     Route: 065
     Dates: start: 2009, end: 2011
  18. LIPITOR [Concomitant]
     Route: 065
     Dates: start: 2009, end: 2011

REACTIONS (11)
  - Haemorrhage intracranial [Fatal]
  - Gastrointestinal haemorrhage [Fatal]
  - Haemorrhagic stroke [Fatal]
  - Acute respiratory failure [Unknown]
  - Septic shock [Unknown]
  - Renal failure acute [Unknown]
  - Subcutaneous haematoma [Unknown]
  - Haemorrhage [Unknown]
  - Epistaxis [Unknown]
  - Headache [Not Recovered/Not Resolved]
  - Headache [Not Recovered/Not Resolved]
